FAERS Safety Report 8955403 (Version 4)
Quarter: 2025Q2

REPORT INFORMATION
  Report Type: Spontaneous
  Country: US (occurrence: US)
  Receive Date: 20121207
  Receipt Date: 20250501
  Transmission Date: 20250716
  Serious: Yes (Hospitalization, Other)
  Sender: ROCHE
  Company Number: US-ROCHE-1165057

PATIENT
  Age: 68 Year
  Sex: Female

DRUGS (8)
  1. BONIVA [Suspect]
     Active Substance: IBANDRONATE SODIUM
     Indication: Osteoporosis
     Route: 042
     Dates: start: 1999, end: 2010
  2. BONIVA [Suspect]
     Active Substance: IBANDRONATE SODIUM
     Route: 042
     Dates: start: 200001
  3. BONIVA [Suspect]
     Active Substance: IBANDRONATE SODIUM
     Route: 042
     Dates: start: 20070413
  4. BONIVA [Suspect]
     Active Substance: IBANDRONATE SODIUM
     Route: 042
     Dates: start: 20080104
  5. BONIVA [Suspect]
     Active Substance: IBANDRONATE SODIUM
     Route: 042
     Dates: start: 20080404
  6. BONIVA [Suspect]
     Active Substance: IBANDRONATE SODIUM
     Route: 042
     Dates: start: 20100111
  7. FOSAMAX [Suspect]
     Active Substance: ALENDRONATE SODIUM
     Indication: Osteoporosis
     Route: 065
     Dates: start: 1999, end: 2010
  8. RECLAST [Suspect]
     Active Substance: ZOLEDRONIC ACID
     Indication: Osteoporosis
     Route: 065
     Dates: start: 1999, end: 2010

REACTIONS (3)
  - Femur fracture [Unknown]
  - Emotional distress [Unknown]
  - Dyspnoea [Unknown]

NARRATIVE: CASE EVENT DATE: 20101209
